FAERS Safety Report 9578825 (Version 1)
Quarter: 2013Q4

REPORT INFORMATION
  Report Type: Spontaneous
  Country: US (occurrence: US)
  Receive Date: 20131001
  Receipt Date: 20131001
  Transmission Date: 20140711
  Serious: No
  Sender: FDA-Public Use
  Company Number: US-AMGEN-USASP2013014683

PATIENT
  Sex: Male
  Weight: 102.4 kg

DRUGS (8)
  1. ENBREL [Suspect]
     Indication: PRODUCT USED FOR UNKNOWN INDICATION
     Dosage: 50 MG, QWK
     Route: 058
  2. RESTASIS [Concomitant]
     Dosage: 0.05 %, UNK
  3. DILTIAZEM [Concomitant]
     Dosage: 180 MG, UNK
  4. ETODOLAC [Concomitant]
     Dosage: 400 MG, UNK
  5. LISINOPRIL [Concomitant]
     Dosage: 40 MG, UNK
  6. JANTOVEN [Concomitant]
     Dosage: 5 MG, UNK
  7. PREDNISONE [Concomitant]
     Dosage: UNK
  8. MULTIVITAMINS, PLAIN [Concomitant]
     Dosage: UNK

REACTIONS (2)
  - Nasopharyngitis [Unknown]
  - Dry mouth [Unknown]
